FAERS Safety Report 15735994 (Version 1)
Quarter: 2018Q4

REPORT INFORMATION
  Report Type: Spontaneous
  Country: US (occurrence: US)
  Receive Date: 20181218
  Receipt Date: 20181218
  Transmission Date: 20190205
  Serious: Yes (Other)
  Sender: FDA-Public Use
  Company Number: US-TEVA-2018-US-989087

PATIENT
  Age: 13 Year
  Sex: Female

DRUGS (13)
  1. JUNEL FE 1/20 [Concomitant]
     Active Substance: ETHINYL ESTRADIOL\NORETHINDRONE ACETATE
     Indication: AMENORRHOEA
     Dosage: 1 MG/20 MICROG OF FERROUS-FUMARATE
     Route: 048
  2. VINCRISTINE [Suspect]
     Active Substance: VINCRISTINE
     Indication: METASTASES TO LUNG
  3. MEDROXYPROGESTERONE [Concomitant]
     Active Substance: MEDROXYPROGESTERONE
     Indication: AMENORRHOEA
     Dosage: 10 MG FROM DAYS 1-10
     Route: 065
  4. DOXORUBICIN [Suspect]
     Active Substance: DOXORUBICIN
     Indication: EWING^S SARCOMA METASTATIC
     Dosage: TOTAL DOSE: 360 MG/M2
     Route: 065
  5. ESTRACE [Concomitant]
     Active Substance: ESTRADIOL
     Indication: AMENORRHOEA
     Dosage: ALTERNATE DAY (INCREASED TO 1.5 MG)
     Route: 048
  6. VINCRISTINE [Suspect]
     Active Substance: VINCRISTINE
     Indication: EWING^S SARCOMA METASTATIC
     Route: 065
  7. IFOSFAMIDE. [Suspect]
     Active Substance: IFOSFAMIDE
     Indication: EWING^S SARCOMA METASTATIC
     Dosage: TOTAL DOSE: 102 G/M2
     Route: 065
  8. IFOSFAMIDE. [Suspect]
     Active Substance: IFOSFAMIDE
     Indication: METASTASES TO LUNG
  9. DOXORUBICIN [Suspect]
     Active Substance: DOXORUBICIN
     Indication: METASTASES TO LUNG
  10. ETOPOSIDE. [Suspect]
     Active Substance: ETOPOSIDE
     Indication: EWING^S SARCOMA METASTATIC
     Dosage: TOTAL DOSE: 2700 MG/M2
     Route: 065
  11. ESTRACE [Concomitant]
     Active Substance: ESTRADIOL
     Indication: AMENORRHOEA
     Dosage: ALTERNATE DAY
     Route: 048
  12. ESTROGEN [Concomitant]
     Active Substance: ESTROGENS
     Indication: AMENORRHOEA
     Dosage: SLOWLY INCREASING DOSES
     Route: 062
  13. ETOPOSIDE. [Suspect]
     Active Substance: ETOPOSIDE
     Indication: METASTASES TO LUNG

REACTIONS (4)
  - Premature menopause [Not Recovered/Not Resolved]
  - Amenorrhoea [Not Recovered/Not Resolved]
  - Delayed puberty [Recovering/Resolving]
  - Uterine injury [Not Recovered/Not Resolved]
